FAERS Safety Report 4954771-6 (Version None)
Quarter: 2006Q1

REPORT INFORMATION
  Report Type: 
  Country: None (occurrence: None)
  Receive Date: 20060322
  Receipt Date: 20060222
  Transmission Date: 20060701
  Serious: Yes (Other)
  Sender: FDA-Public Use
  Company Number: ZA200603002578

PATIENT
  Age: 9 Year
  Sex: Female

DRUGS (2)
  1. HUMATROPE [Suspect]
     Dates: start: 20050302, end: 20050323
  2. HUMATROPE [Suspect]
     Dates: start: 20050414

REACTIONS (1)
  - GERM CELL CANCER [None]
